FAERS Safety Report 9028854 (Version 1)
Quarter: 2013Q1

REPORT INFORMATION
  Report Type: Spontaneous
  Country: US (occurrence: US)
  Receive Date: 20130124
  Receipt Date: 20130124
  Transmission Date: 20140127
  Serious: Yes (Other)
  Sender: FDA-Public Use
  Company Number: US-PURDUE-USA-2013-0097734

PATIENT
  Age: 69 Year
  Sex: Female

DRUGS (1)
  1. COLACE [Suspect]
     Dosage: 100 MG, DAILY

REACTIONS (1)
  - Drug dependence [Unknown]
